FAERS Safety Report 4920885-X (Version None)
Quarter: 2006Q1

REPORT INFORMATION
  Report Type: 
  Country: None (occurrence: None)
  Receive Date: 20060223
  Receipt Date: 20050406
  Transmission Date: 20060701
  Serious: Yes (Hospitalization, Other)
  Sender: FDA-Public Use
  Company Number: US-MERCK-0504USA00827

PATIENT
  Age: 71 Year
  Sex: Female
  Weight: 58 kg

DRUGS (3)
  1. VIOXX [Suspect]
     Indication: SPONDYLITIS
     Route: 048
     Dates: start: 20000901, end: 20040101
  2. VIOXX [Suspect]
     Route: 048
     Dates: start: 20000901, end: 20040101
  3. VIOXX [Suspect]
     Route: 048
     Dates: start: 20000803, end: 20040930

REACTIONS (8)
  - AMNESIA [None]
  - ARTHROPATHY [None]
  - BLADDER DISORDER [None]
  - BLINDNESS UNILATERAL [None]
  - CEREBROVASCULAR ACCIDENT [None]
  - EMOTIONAL DISTRESS [None]
  - GASTROINTESTINAL DISORDER [None]
  - RECTOCELE [None]
